FAERS Safety Report 7844353-0 (Version None)
Quarter: 2011Q4

REPORT INFORMATION
  Report Type: 
  Country: None (occurrence: None)
  Receive Date: 20111025
  Receipt Date: 20111010
  Transmission Date: 20120403
  Serious: Yes (Hospitalization)
  Sender: FDA-Public Use
  Company Number: US-ALEXION-A201100610

PATIENT
  Sex: Female

DRUGS (1)
  1. SOLIRIS [Suspect]
     Indication: PAROXYSMAL NOCTURNAL HAEMOGLOBINURIA
     Dosage: 900 MG, Q2W
     Route: 042

REACTIONS (6)
  - HAEMOGLOBIN DECREASED [None]
  - PRODUCTIVE COUGH [None]
  - HEADACHE [None]
  - ASTHENIA [None]
  - SINUSITIS [None]
  - BLOOD LACTATE DEHYDROGENASE INCREASED [None]
